FAERS Safety Report 10159097 (Version 3)
Quarter: 2014Q2

REPORT INFORMATION
  Report Type: Spontaneous
  Country: US (occurrence: US)
  Receive Date: 20140508
  Receipt Date: 20140623
  Transmission Date: 20141212
  Serious: Yes (Disabling)
  Sender: FDA-Public Use
  Company Number: US-UCBSA-120182

PATIENT
  Sex: Female
  Weight: 52.61 kg

DRUGS (12)
  1. CIMZIA [Suspect]
     Indication: RHEUMATOID ARTHRITIS
     Dosage: 200 MG, EV 2 WEEKS(QOW)
     Route: 058
     Dates: end: 201209
  2. CIMZIA [Suspect]
     Dosage: 200 MG, EV 2 WEEKS(QOW)
     Route: 058
     Dates: start: 201301, end: 201403
  3. CIMZIA [Suspect]
     Dosage: 200 MG, EV 2 WEEKS(QOW)
     Route: 058
     Dates: start: 20140608
  4. REMICADE [Concomitant]
     Dosage: UNK
  5. ORENCIA [Concomitant]
     Dosage: UNK
     Route: 042
  6. COREG [Concomitant]
     Indication: BLOOD PRESSURE
     Dosage: 6.5 MG, 2X/DAY (BID)
     Route: 048
  7. DIOVAN [Concomitant]
     Indication: BLOOD PRESSURE
     Dosage: 80 MG, 2X/DAY (BID)
     Route: 048
  8. SULFASALAZINE [Concomitant]
     Indication: RHEUMATOID ARTHRITIS
     Dosage: 500 MG, 2X/DAY (BID)
     Route: 048
  9. LIPITOR [Concomitant]
     Indication: BLOOD CHOLESTEROL INCREASED
     Dosage: UNK, ONCE DAILY (QD)
     Route: 048
  10. SINGULAR [Concomitant]
     Indication: HYPERSENSITIVITY
     Dosage: UNK, ONCE DAILY (QD)
     Route: 048
  11. ZYRTEC [Concomitant]
     Dosage: UNK, ONCE DAILY (QD)
     Route: 048
  12. VICODIN [Concomitant]
     Indication: PAIN
     Dosage: UNK, AS NEEDED (PRN)
     Route: 048

REACTIONS (7)
  - Physical disability [Not Recovered/Not Resolved]
  - Spinal pain [Not Recovered/Not Resolved]
  - Arthralgia [Not Recovered/Not Resolved]
  - Musculoskeletal pain [Not Recovered/Not Resolved]
  - Arthritis [Unknown]
  - Migraine [Unknown]
  - Tooth fracture [Unknown]
